FAERS Safety Report 9038421 (Version 1)
Quarter: 2013Q1

REPORT INFORMATION
  Report Type: Report from Study
  Country: PR (occurrence: PR)
  Receive Date: 20130130
  Receipt Date: 20130130
  Transmission Date: 20140127
  Serious: Yes (Hospitalization)
  Sender: FDA-Public Use
  Company Number: PR-ABBOTT-12P-131-0936908-00

PATIENT
  Age: 80 None
  Sex: Female
  Weight: 68.1 kg

DRUGS (5)
  1. HUMIRA 40 MG/ 0.8 ML PRE-FILLED SYRINGE [Suspect]
     Indication: RHEUMATOID ARTHRITIS
     Route: 058
     Dates: end: 20120422
  2. UNKNOWN PILL [Concomitant]
     Indication: DIABETES MELLITUS
     Route: 048
  3. LOPRESOL [Concomitant]
     Indication: HYPERTENSION
     Route: 048
  4. UNK PILL [Concomitant]
     Indication: DYSPEPSIA
     Route: 048
  5. UNK PILL [Concomitant]
     Indication: RHEUMATOID ARTHRITIS
     Route: 048

REACTIONS (4)
  - Bronchitis [Recovered/Resolved]
  - Pyrexia [Recovered/Resolved]
  - Hypertension [Recovered/Resolved]
  - Pain in extremity [Not Recovered/Not Resolved]
